FAERS Safety Report 20713391 (Version 2)
Quarter: 2022Q4

REPORT INFORMATION
  Report Type: Report from Study
  Country: US (occurrence: US)
  Receive Date: 20220415
  Receipt Date: 20221107
  Transmission Date: 20230112
  Serious: Yes (Death, Other)
  Sender: FDA-Public Use
  Company Number: US-GLAXOSMITHKLINE-US2022AMR008117

PATIENT

DRUGS (1)
  1. BELANTAMAB MAFODOTIN [Suspect]
     Active Substance: BELANTAMAB MAFODOTIN
     Indication: Product used for unknown indication
     Dosage: UNK
     Dates: start: 20211227, end: 20220412

REACTIONS (3)
  - Death [Fatal]
  - Visual acuity reduced [Recovering/Resolving]
  - Keratopathy [Recovering/Resolving]

NARRATIVE: CASE EVENT DATE: 20220114
